FAERS Safety Report 8821765 (Version 1)
Quarter: 2012Q4

REPORT INFORMATION
  Report Type: 
  Country: US (occurrence: US)
  Receive Date: 20121002
  Receipt Date: 20121002
  Transmission Date: 20130627
  Serious: No
  Sender: FDA-Public Use
  Company Number: US-009507513-1210USA000528

PATIENT
  Sex: Female

DRUGS (4)
  1. JANUVIA [Suspect]
     Dosage: UNK
     Route: 048
  2. JANUMET [Suspect]
     Route: 048
  3. COZAAR [Suspect]
     Route: 048
  4. METFORMIN HYDROCHLORIDE [Suspect]
     Dosage: UNK
     Route: 048

REACTIONS (1)
  - Pruritus [Unknown]
